FAERS Safety Report 6733710-1 (Version None)
Quarter: 2010Q2

REPORT INFORMATION
  Report Type: 
  Country: None (occurrence: None)
  Receive Date: 20100520
  Receipt Date: 20100507
  Transmission Date: 20101027
  Serious: Yes (Other)
  Sender: FDA-Public Use
  Company Number: PHHY2010RU17380

PATIENT
  Sex: Female

DRUGS (2)
  1. EXFORGE [Suspect]
     Indication: HYPERTENSION
     Dosage: 160/5 MG
     Route: 048
     Dates: start: 20090901
  2. EXFORGE [Suspect]
     Dosage: 80/5 MG BID
     Route: 048
     Dates: start: 20100418

REACTIONS (5)
  - ADRENAL CYST [None]
  - ADRENAL NEOPLASM [None]
  - BLOOD PRESSURE INCREASED [None]
  - DRUG INEFFECTIVE [None]
  - RENAL CYST [None]
